FAERS Safety Report 13698376 (Version 1)
Quarter: 2017Q2

REPORT INFORMATION
  Report Type: Spontaneous
  Country: US (occurrence: US)
  Receive Date: 20170628
  Receipt Date: 20170628
  Transmission Date: 20170830
  Serious: No
  Sender: FDA-Public Use
  Company Number: US-EMD SERONO-8164667

PATIENT
  Sex: Female

DRUGS (1)
  1. REBIF [Suspect]
     Active Substance: INTERFERON BETA-1A
     Indication: MULTIPLE SCLEROSIS
     Route: 058

REACTIONS (5)
  - Muscle twitching [Unknown]
  - Chills [Unknown]
  - Pyrexia [Unknown]
  - Insomnia [Unknown]
  - Alopecia [Unknown]
